FAERS Safety Report 21682733 (Version 1)
Quarter: 2022Q4

REPORT INFORMATION
  Report Type: Spontaneous
  Country: US (occurrence: None)
  Receive Date: 20221202
  Receipt Date: 20221202
  Transmission Date: 20230113
  Serious: Yes (Other)
  Sender: FDA-Public Use
  Company Number: None

PATIENT
  Age: 55 Year
  Sex: Female
  Weight: 75.75 kg

DRUGS (1)
  1. PARAGARD T 380A [Suspect]
     Active Substance: COPPER
     Dates: start: 20120416, end: 20221202

REACTIONS (3)
  - Complication of device removal [None]
  - Device breakage [None]
  - Foreign body in reproductive tract [None]

NARRATIVE: CASE EVENT DATE: 20221202
